FAERS Safety Report 12139841 (Version 1)
Quarter: 2016Q1

REPORT INFORMATION
  Report Type: Spontaneous
  Country: JP (occurrence: JP)
  Receive Date: 20160303
  Receipt Date: 20160303
  Transmission Date: 20160526
  Serious: Yes (Death, Hospitalization)
  Sender: FDA-Public Use
  Company Number: JP-009507513-1602JPN003007

PATIENT
  Age: 83 Year
  Sex: Female

DRUGS (6)
  1. MEROPEN [Concomitant]
     Active Substance: MEROPENEM
     Dosage: DAILY DOSAGE UNKNOWN; ONCE EVERY 2 DAYS
     Route: 041
  2. CUBICIN [Suspect]
     Active Substance: DAPTOMYCIN
     Dosage: DAILY DOSAGE UNKNOWN; ONCE EVERY OTHER DAY (3/WEEK)
     Route: 041
     Dates: end: 201601
  3. FINIBAX [Concomitant]
     Active Substance: DORIPENEM MONOHYDRATE
     Dosage: DAILY DOSAGE UNKNOWN
     Route: 051
  4. OLMETEC [Concomitant]
     Active Substance: OLMESARTAN MEDOXOMIL
     Dosage: DAILY DOSAGE UNKNOWN; PER ORAL FORMULATION (POR)
     Route: 048
  5. VOLTAREN [Concomitant]
     Active Substance: DICLOFENAC SODIUM
     Dosage: DAILY DOSAGE UNKNOWN; FORMULATION REPORTED AS XXX
     Route: 065
  6. CALONAL [Concomitant]
     Active Substance: ACETAMINOPHEN
     Dosage: DAILY DOSAGE UNKNOWN; FORMULATION REPORTED AS XXX
     Route: 065

REACTIONS (2)
  - Eosinophilic pneumonia [Recovering/Resolving]
  - Chronic kidney disease [Fatal]

NARRATIVE: CASE EVENT DATE: 20160107
